FAERS Safety Report 18656480 (Version 1)
Quarter: 2020Q4

REPORT INFORMATION
  Report Type: Spontaneous
  Country: US (occurrence: US)
  Receive Date: 20201223
  Receipt Date: 20201223
  Transmission Date: 20210114
  Serious: Yes (Other)
  Sender: FDA-Public Use
  Company Number: US-PFIZER INC-2020037614

PATIENT
  Age: 83 Year
  Sex: Female
  Weight: 91.17 kg

DRUGS (2)
  1. VYNDAQEL [Suspect]
     Active Substance: TAFAMIDIS MEGLUMINE
     Indication: AMYLOIDOSIS
     Dosage: 80 MG
     Dates: start: 20190922
  2. VYNDAQEL [Suspect]
     Active Substance: TAFAMIDIS MEGLUMINE
     Indication: CARDIAC AMYLOIDOSIS
     Dosage: 80 MG, DAILY (20MG CAPSULE; TAKE FOUR DAILY BY MOUTH)
     Route: 048
     Dates: start: 201909

REACTIONS (13)
  - Blood pressure abnormal [Unknown]
  - Back pain [Unknown]
  - Deep vein thrombosis [Unknown]
  - Cardiac arrest [Unknown]
  - Gastric cancer [Unknown]
  - Occult blood [Unknown]
  - Dyspnoea [Unknown]
  - Asthenia [Unknown]
  - Dizziness [Unknown]
  - Pulmonary embolism [Unknown]
  - Arthralgia [Unknown]
  - Colon cancer [Unknown]
  - Anaemia [Unknown]
